FAERS Safety Report 16314341 (Version 1)
Quarter: 2019Q2

REPORT INFORMATION
  Report Type: Spontaneous
  Country: GB (occurrence: GB)
  Receive Date: 20190515
  Receipt Date: 20190515
  Transmission Date: 20190711
  Serious: Yes (Hospitalization)
  Sender: FDA-Public Use
  Company Number: GB-ELI_LILLY_AND_COMPANY-GB201905001184

PATIENT
  Age: 40 Year
  Sex: Female
  Weight: 103 kg

DRUGS (1)
  1. TRULICITY [Suspect]
     Active Substance: DULAGLUTIDE
     Indication: TYPE 2 DIABETES MELLITUS
     Dosage: 1.5 MG, UNKNOWN
     Route: 003
     Dates: start: 20190207, end: 20190315

REACTIONS (1)
  - Cholecystitis [Recovered/Resolved]

NARRATIVE: CASE EVENT DATE: 20190315
